FAERS Safety Report 11588031 (Version 3)
Quarter: 2015Q4

REPORT INFORMATION
  Report Type: Spontaneous
  Country: ES (occurrence: ES)
  Receive Date: 20151002
  Receipt Date: 20151214
  Transmission Date: 20160304
  Serious: Yes (Hospitalization, Other)
  Sender: FDA-Public Use
  Company Number: ES-ROCHE-1640570

PATIENT
  Age: 79 Year
  Sex: Male

DRUGS (2)
  1. TOCILIZUMAB [Suspect]
     Active Substance: TOCILIZUMAB
     Indication: RHEUMATOID ARTHRITIS
     Route: 065
     Dates: start: 201503, end: 201509
  2. METHOTREXATE [Suspect]
     Active Substance: METHOTREXATE
     Indication: PRODUCT USED FOR UNKNOWN INDICATION
     Route: 065

REACTIONS (8)
  - Neoplasm malignant [Unknown]
  - Escherichia sepsis [Unknown]
  - Escherichia urinary tract infection [Unknown]
  - Septic shock [Unknown]
  - Urinary tract obstruction [Unknown]
  - Myelodysplastic syndrome [Unknown]
  - Renal neoplasm [Unknown]
  - Pancytopenia [Recovering/Resolving]
